FAERS Safety Report 4773116-8 (Version None)
Quarter: 2005Q3

REPORT INFORMATION
  Report Type: 
  Country: None (occurrence: None)
  Receive Date: 20050915
  Receipt Date: 20050915
  Transmission Date: 20060218
  Serious: Yes (Other)
  Sender: FDA-Public Use
  Company Number: None

PATIENT
  Age: 26 Year
  Sex: Female
  Weight: 65.7716 kg

DRUGS (1)
  1. PAXIL CR [Suspect]
     Indication: GENERALISED ANXIETY DISORDER
     Dosage: 12.5 MG 1 PER DAY PO
     Route: 048
     Dates: start: 20040201, end: 20050914

REACTIONS (4)
  - DRUG WITHDRAWAL SYNDROME [None]
  - LETHARGY [None]
  - MOOD SWINGS [None]
  - TINNITUS [None]
